FAERS Safety Report 18227406 (Version 1)
Quarter: 2020Q3

REPORT INFORMATION
  Report Type: Spontaneous
  Country: US (occurrence: US)
  Receive Date: 20200903
  Receipt Date: 20200903
  Transmission Date: 20201103
  Serious: Yes (Other)
  Sender: FDA-Public Use
  Company Number: US-SA-2020SA237213

PATIENT

DRUGS (1)
  1. ZANTAC [Suspect]
     Active Substance: RANITIDINE HYDROCHLORIDE
     Dosage: UNK
     Dates: start: 200001, end: 201803

REACTIONS (3)
  - Ovarian cancer [Unknown]
  - Tongue neoplasm malignant stage unspecified [Unknown]
  - Uterine cancer [Unknown]

NARRATIVE: CASE EVENT DATE: 2006
